FAERS Safety Report 8359808-2 (Version None)
Quarter: 2012Q2

REPORT INFORMATION
  Report Type: 
  Country: None (occurrence: None)
  Receive Date: 20120515
  Receipt Date: 20120503
  Transmission Date: 20120825
  Serious: Yes (Hospitalization, Other)
  Sender: FDA-Public Use
  Company Number: PHHY2010CA55208

PATIENT
  Sex: Male

DRUGS (4)
  1. CLOZARIL [Suspect]
     Dosage: UNK UKN, UNK
     Route: 048
     Dates: start: 20020709, end: 20100820
  2. NEUPOGEN [Concomitant]
     Dosage: UNK UKN, UNK
     Dates: start: 20100101
  3. CLOZARIL [Suspect]
     Dosage: UNK UKN, UNK
     Route: 048
     Dates: start: 19951114, end: 20000322
  4. CLOZARIL [Suspect]
     Indication: SCHIZOPHRENIA
     Dosage: UNK UKN, UNK
     Route: 048
     Dates: start: 19930322, end: 19941113

REACTIONS (20)
  - BLOOD CREATININE DECREASED [None]
  - LUNG NEOPLASM MALIGNANT [None]
  - LOGORRHOEA [None]
  - POOR QUALITY SLEEP [None]
  - VOMITING [None]
  - GASTRITIS [None]
  - AGITATION [None]
  - PYREXIA [None]
  - NEUTROPHIL COUNT DECREASED [None]
  - DEHYDRATION [None]
  - RIB FRACTURE [None]
  - AGRANULOCYTOSIS [None]
  - LEUKOPENIA [None]
  - PSYCHOTIC DISORDER [None]
  - TOXICITY TO VARIOUS AGENTS [None]
  - NAUSEA [None]
  - WHITE BLOOD CELL COUNT DECREASED [None]
  - NEUROPATHY PERIPHERAL [None]
  - OESOPHAGITIS ULCERATIVE [None]
  - RENAL FAILURE [None]
